FAERS Safety Report 23122251 (Version 1)
Quarter: 2023Q4

REPORT INFORMATION
  Report Type: Report from Study
  Country: AT (occurrence: AT)
  Receive Date: 20231030
  Receipt Date: 20231030
  Transmission Date: 20240110
  Serious: Yes (Death)
  Sender: FDA-Public Use
  Company Number: AT-SA-SAC20231026001638

PATIENT
  Age: 75 Year
  Sex: Male

DRUGS (7)
  1. ISATUXIMAB [Suspect]
     Active Substance: ISATUXIMAB
     Indication: Plasma cell myeloma
     Dosage: 690 MG, QW FOR 28 DAYS
     Route: 041
     Dates: start: 20230713, end: 20230713
  2. ISATUXIMAB [Suspect]
     Active Substance: ISATUXIMAB
     Dosage: 690 MG, QW, FOR 28 DAYS
     Route: 041
     Dates: start: 20230928, end: 20230928
  3. LENALIDOMIDE [Suspect]
     Active Substance: LENALIDOMIDE
     Indication: Plasma cell myeloma
     Dosage: 25 MG, QD, FOR 28 DAYS
     Route: 048
     Dates: start: 20230714, end: 20230714
  4. DEXAMETHASONE [Suspect]
     Active Substance: DEXAMETHASONE
     Indication: Plasma cell myeloma
     Dosage: 20 MG, QW, FOR 28 DAYS
     Route: 048
     Dates: start: 20230713, end: 20230713
  5. DEXAMETHASONE [Suspect]
     Active Substance: DEXAMETHASONE
     Dosage: 20 MG, QW, FOR 28 DAYS
     Route: 048
     Dates: start: 20231005, end: 20231005
  6. PANTOPRAZOLE [Concomitant]
     Active Substance: PANTOPRAZOLE
     Indication: Prophylaxis
     Dosage: 20 MG
  7. ASPIRIN [Concomitant]
     Active Substance: ASPIRIN
     Indication: Prophylaxis
     Dosage: 100 MG

REACTIONS (1)
  - Respiratory failure [Fatal]

NARRATIVE: CASE EVENT DATE: 20231008
